FAERS Safety Report 5773110-4 (Version None)
Quarter: 2008Q2

REPORT INFORMATION
  Report Type: 
  Country: None (occurrence: None)
  Receive Date: 20080522
  Receipt Date: 20080509
  Transmission Date: 20081010
  Serious: Yes (Other)
  Sender: FDA-Public Use
  Company Number: JHP200800104

PATIENT
  Age: 50 Year
  Sex: Female

DRUGS (1)
  1. APLISOL [Suspect]
     Indication: TUBERCULIN TEST
     Dosage: 0.1 MG, SINGLE, INTRADERMAL
     Route: 023
     Dates: start: 20080301, end: 20080301

REACTIONS (4)
  - ARTHRALGIA [None]
  - ARTHRITIS [None]
  - PYREXIA [None]
  - RASH ERYTHEMATOUS [None]
